FAERS Safety Report 5938754-5 (Version None)
Quarter: 2008Q4

REPORT INFORMATION
  Report Type: 
  Country: None (occurrence: None)
  Receive Date: 20081103
  Receipt Date: 20081028
  Transmission Date: 20090506
  Serious: Yes (Hospitalization, Other)
  Sender: FDA-Public Use
  Company Number: JP-BAYER-200812294BYL

PATIENT
  Age: 63 Year
  Sex: Male
  Weight: 73 kg

DRUGS (4)
  1. NEXAVAR [Suspect]
     Indication: RENAL CELL CARCINOMA STAGE IV
     Dosage: AS USED: 800 MG  UNIT DOSE: 200 MG
     Route: 048
     Dates: start: 20080519, end: 20080604
  2. NEXAVAR [Suspect]
     Dosage: AS USED: 800 MG  UNIT DOSE: 200 MG
     Route: 048
     Dates: start: 20080617, end: 20080618
  3. NEXAVAR [Suspect]
     Dosage: AS USED: 400 MG  UNIT DOSE: 200 MG
     Route: 048
     Dates: start: 20080623
  4. SUMIFERON [Concomitant]
     Indication: RENAL CELL CARCINOMA STAGE IV
     Dosage: AS USED: 1.5 MIU
     Route: 058
     Dates: start: 20050909, end: 20080604

REACTIONS (4)
  - ASTHENIA [None]
  - BLOOD BILIRUBIN INCREASED [None]
  - HYPOTHERMIA [None]
  - PYREXIA [None]
